FAERS Safety Report 18686781 (Version 1)
Quarter: 2020Q4

REPORT INFORMATION
  Report Type: Spontaneous
  Country: TR (occurrence: TR)
  Receive Date: 20201230
  Receipt Date: 20201230
  Transmission Date: 20210114
  Serious: Yes (Other)
  Sender: FDA-Public Use
  Company Number: TR-LUPIN PHARMACEUTICALS INC.-2020-11111

PATIENT
  Age: 22 Year
  Sex: Male

DRUGS (4)
  1. METHYLPHENIDATE. [Suspect]
     Active Substance: METHYLPHENIDATE
     Indication: ATTENTION DEFICIT HYPERACTIVITY DISORDER
     Dosage: 10 MILLIGRAM, BID (IMMEDIATE RELEASE; THE ADMINISTRATION WAS RESCHEDULED TO 6PM IN THE EVENING)
     Route: 065
  2. METHYLPHENIDATE. [Suspect]
     Active Substance: METHYLPHENIDATE
     Dosage: 36 MILLIGRAM, QD, OSMOTIC RELEASE ORAL SYSTEM METHYLPHENIDATE
     Route: 048
  3. METHYLPHENIDATE. [Suspect]
     Active Substance: METHYLPHENIDATE
     Dosage: 20 MILLIGRAM, BID
     Route: 065
  4. METHYLPHENIDATE. [Suspect]
     Active Substance: METHYLPHENIDATE
     Dosage: 54 MILLIGRAM, QD, INITIALLY ADMINISTERED IN THE EVENING FURTHER RESCHEDULED ADMINISTRATION IN THE MO
     Route: 048

REACTIONS (1)
  - Stereotypy [Recovered/Resolved]
